FAERS Safety Report 13964860 (Version 1)
Quarter: 2017Q3

REPORT INFORMATION
  Report Type: Spontaneous
  Country: US (occurrence: US)
  Receive Date: 20170913
  Receipt Date: 20170913
  Transmission Date: 20171128
  Serious: No
  Sender: FDA-Public Use
  Company Number: US-JNJFOC-20170727642

PATIENT
  Sex: Male

DRUGS (2)
  1. ZYTIGA [Suspect]
     Active Substance: ABIRATERONE ACETATE
     Indication: METASTATIC NEOPLASM
     Route: 048
  2. LOSARTAN. [Concomitant]
     Active Substance: LOSARTAN
     Indication: PRODUCT USED FOR UNKNOWN INDICATION
     Route: 065

REACTIONS (2)
  - Communication disorder [Unknown]
  - Personality change [Unknown]
